FAERS Safety Report 6832452-1 (Version None)
Quarter: 2010Q3

REPORT INFORMATION
  Report Type: 
  Country: None (occurrence: None)
  Receive Date: 20100712
  Receipt Date: 20070309
  Transmission Date: 20110219
  Serious: No
  Sender: FDA-Public Use
  Company Number: US-PFIZER INC-2007020173

PATIENT
  Sex: Male
  Weight: 104.33 kg

DRUGS (3)
  1. CHANTIX [Suspect]
     Indication: SMOKING CESSATION THERAPY
     Dates: start: 20070228
  2. DIOVANE [Concomitant]
     Indication: HYPERTENSION
  3. ALBUTEROL [Concomitant]
     Route: 055

REACTIONS (1)
  - CHEST DISCOMFORT [None]
